FAERS Safety Report 17715287 (Version 2)
Quarter: 2020Q2

REPORT INFORMATION
  Report Type: Spontaneous
  Country: US (occurrence: US)
  Receive Date: 20200427
  Receipt Date: 20200626
  Transmission Date: 20200714
  Serious: Yes (Other)
  Sender: FDA-Public Use
  Company Number: US-BAYER-2020-067448

PATIENT
  Sex: Male

DRUGS (2)
  1. KOVALTRY [Suspect]
     Active Substance: ANTIHEMOPHILIC FACTOR, HUMAN RECOMBINANT
     Dosage: INFUSE 3000 UNITS (+/-10%) EVERY 48 HOURS AND 3000 UNITS (+/-10%) DAILY AS NEEDED FOR BLEED AS DIREC
     Route: 042
     Dates: start: 201905
  2. KOVALTRY [Suspect]
     Active Substance: ANTIHEMOPHILIC FACTOR, HUMAN RECOMBINANT
     Dosage: BLEEDS ON BOTH ELBOWS AND CLAVICLE, TREATED ALL WITH TOTAL OF 5 KOVALTRY DOSES
     Route: 042

REACTIONS (2)
  - Haemarthrosis [Unknown]
  - Osteorrhagia [Unknown]
